FAERS Safety Report 22218411 (Version 1)
Quarter: 2023Q2

REPORT INFORMATION
  Report Type: Spontaneous
  Country: IN (occurrence: IN)
  Receive Date: 20230417
  Receipt Date: 20230417
  Transmission Date: 20230721
  Serious: Yes (Death, Other)
  Sender: FDA-Public Use
  Company Number: IN-PFIZER INC-PV202300066578

PATIENT
  Age: 26 Year
  Sex: Female

DRUGS (5)
  1. METHYLPREDNISOLONE [Suspect]
     Active Substance: METHYLPREDNISOLONE
     Indication: Lupus-like syndrome
     Dosage: 1 G, 1X/DAY, PULSE FOR 3 DAYS
  2. ASPIRIN [Suspect]
     Active Substance: ASPIRIN
     Indication: Lupus-like syndrome
     Dosage: 150 MG
  3. CLOPIDOGREL [Suspect]
     Active Substance: CLOPIDOGREL BISULFATE
     Indication: Lupus-like syndrome
     Dosage: 75 MG
  4. ATORVASTATIN [Suspect]
     Active Substance: ATORVASTATIN
     Indication: Lupus-like syndrome
     Dosage: 40 MG, DAILY
  5. CYCLOPHOSPHAMIDE [Suspect]
     Active Substance: CYCLOPHOSPHAMIDE
     Indication: Lupus-like syndrome
     Dosage: 750 MG/M2
     Route: 042

REACTIONS (10)
  - Sepsis [Fatal]
  - Thyrotoxic crisis [Unknown]
  - Seizure [Unknown]
  - Cytopenia [Unknown]
  - Pneumonia [Unknown]
  - Hyperpyrexia [Recovered/Resolved]
  - Drug ineffective [Unknown]
  - Albuminuria [Unknown]
  - Tachycardia [Recovered/Resolved]
  - Diarrhoea [Unknown]
